FAERS Safety Report 9200953 (Version 1)
Quarter: 2013Q2

REPORT INFORMATION
  Report Type: Spontaneous
  Country: GB (occurrence: GB)
  Receive Date: 20130401
  Receipt Date: 20130401
  Transmission Date: 20140414
  Serious: Yes (Other)
  Sender: FDA-Public Use
  Company Number: GB-JNJFOC-20130316106

PATIENT
  Age: 77 Year
  Sex: Female
  Weight: 57 kg

DRUGS (3)
  1. XARELTO [Suspect]
     Indication: THROMBOSIS PROPHYLAXIS
     Route: 048
     Dates: start: 20120118
  2. XARELTO [Suspect]
     Indication: HIP ARTHROPLASTY
     Route: 048
     Dates: start: 20120118
  3. THYROXINE [Concomitant]
     Indication: HYPERTHYROIDISM
     Route: 065
     Dates: start: 2003

REACTIONS (2)
  - Post procedural haemorrhage [Not Recovered/Not Resolved]
  - Local swelling [Not Recovered/Not Resolved]
